FAERS Safety Report 21477272 (Version 1)
Quarter: 2022Q4

REPORT INFORMATION
  Report Type: Report from Study
  Country: EG (occurrence: EG)
  Receive Date: 20221019
  Receipt Date: 20221019
  Transmission Date: 20230112
  Serious: Yes (Other)
  Sender: FDA-Public Use
  Company Number: EG-BAYER-2022A134725

PATIENT
  Sex: Male

DRUGS (6)
  1. EYLEA [Suspect]
     Active Substance: AFLIBERCEPT
     Indication: Macular oedema
     Dosage: SOLUTION FOR INJECTION
     Route: 031
     Dates: start: 20211019, end: 202206
  2. EYLEA [Suspect]
     Active Substance: AFLIBERCEPT
     Dosage: 1ST INJECTION/LEFT EYE; SOLUTION FOR INJECTION
     Route: 031
     Dates: start: 20211019, end: 20211019
  3. EYLEA [Suspect]
     Active Substance: AFLIBERCEPT
     Dosage: 2ND INJECTION/LEFT EYE; SOLUTION FOR INJECTION
     Route: 031
     Dates: start: 20220111, end: 20220111
  4. EYLEA [Suspect]
     Active Substance: AFLIBERCEPT
     Dosage: 3RD INJECTION/LEFT EYE; SOLUTION FOR INJECTION
     Route: 031
     Dates: start: 20220331, end: 20220331
  5. EYLEA [Suspect]
     Active Substance: AFLIBERCEPT
     Dosage: 4TH AND LAST INJECTION/LEFT EYE; SOLUTION FOR INJECTION
     Route: 031
     Dates: start: 20220623, end: 20220623
  6. OPHTHALMOLOGICALS [Concomitant]
     Indication: Product used for unknown indication

REACTIONS (7)
  - Vitrectomy [Not Recovered/Not Resolved]
  - Blindness unilateral [Not Recovered/Not Resolved]
  - Cataract operation [Not Recovered/Not Resolved]
  - Eye laser surgery [Not Recovered/Not Resolved]
  - Headache [Recovered/Resolved]
  - Ocular hyperaemia [Not Recovered/Not Resolved]
  - Intraocular pressure increased [Recovered/Resolved]

NARRATIVE: CASE EVENT DATE: 20220601
